FAERS Safety Report 7842603-8 (Version None)
Quarter: 2011Q4

REPORT INFORMATION
  Report Type: 
  Country: None (occurrence: None)
  Receive Date: 20111025
  Receipt Date: 20111018
  Transmission Date: 20120403
  Serious: Yes (Other)
  Sender: FDA-Public Use
  Company Number: US-PFIZER INC-2011162762

PATIENT
  Sex: Male
  Weight: 58.96 kg

DRUGS (6)
  1. CYMBALTA [Concomitant]
     Dosage: 60 MG, 1X/DAY
  2. LYRICA [Suspect]
     Indication: FIBROMYALGIA
     Dosage: 100 MG, 3X/DAY
     Dates: start: 20060101
  3. OXYCODONE [Concomitant]
  4. LYRICA [Suspect]
     Dosage: 300 MG, 3X/DAY
  5. ZANAFLEX [Concomitant]
     Dosage: 4 MG, 3X/DAY
  6. OXYCODONE [Concomitant]
     Indication: PAIN
     Dosage: 15 MG, 3X/DAY
     Route: 048

REACTIONS (4)
  - GASTRIC ULCER [None]
  - CONVULSION [None]
  - BLINDNESS [None]
  - EXTRASYSTOLES [None]
